FAERS Safety Report 16795228 (Version 2)
Quarter: 2019Q3

REPORT INFORMATION
  Report Type: Spontaneous
  Country: US (occurrence: US)
  Receive Date: 20190911
  Receipt Date: 20190916
  Transmission Date: 20191005
  Serious: Yes (Other)
  Sender: FDA-Public Use
  Company Number: US-PFIZER INC-2019391173

PATIENT
  Age: 6 Decade
  Sex: Female
  Weight: 66.68 kg

DRUGS (2)
  1. NEURONTIN [Suspect]
     Active Substance: GABAPENTIN
     Indication: HEADACHE
     Dosage: UNK
     Dates: start: 2019
  2. NEURONTIN [Suspect]
     Active Substance: GABAPENTIN
     Indication: ANXIETY

REACTIONS (6)
  - Sinusitis [Unknown]
  - Product use in unapproved indication [Unknown]
  - Off label use [Unknown]
  - Bronchitis [Unknown]
  - Malaise [Unknown]
  - Disease recurrence [Unknown]

NARRATIVE: CASE EVENT DATE: 2019
